FAERS Safety Report 25273589 (Version 1)
Quarter: 2025Q2

REPORT INFORMATION
  Report Type: Spontaneous
  Country: US (occurrence: None)
  Receive Date: 20250506
  Receipt Date: 20250506
  Transmission Date: 20250717
  Serious: No
  Sender: FDA-CTU
  Company Number: None

PATIENT

DRUGS (1)
  1. HUMULIN NOS [Suspect]
     Active Substance: INSULIN HUMAN

REACTIONS (3)
  - Treatment noncompliance [None]
  - Hypoglycaemia [None]
  - Blood glucose fluctuation [None]
